FAERS Safety Report 11246778 (Version 2)
Quarter: 2015Q3

REPORT INFORMATION
  Report Type: Spontaneous
  Country: IT (occurrence: IT)
  Receive Date: 20150708
  Receipt Date: 20150714
  Transmission Date: 20151125
  Serious: Yes (Other)
  Sender: FDA-Public Use
  Company Number: IT-ROCHE-1604931

PATIENT
  Age: 90 Year
  Sex: Female

DRUGS (8)
  1. ROCEFIN [Suspect]
     Active Substance: CEFTRIAXONE SODIUM
     Indication: RESPIRATORY TRACT INFECTION
     Dosage: 1 G/3.5 ML-1 VIAL POWDER+ 1 X 3.5 ML VIAL SOLVENT
     Route: 030
     Dates: start: 20150608, end: 20150619
  2. COUMADIN [Interacting]
     Active Substance: WARFARIN SODIUM
     Indication: CEREBROVASCULAR ACCIDENT PROPHYLAXIS
     Dosage: 5 MG TABLETS- 30 SCORED TABLETS
     Route: 048
     Dates: start: 20140513, end: 20150625
  3. COUMADIN [Interacting]
     Active Substance: WARFARIN SODIUM
     Route: 048
  4. FUROSEMIDE. [Concomitant]
     Active Substance: FUROSEMIDE
  5. COUMADIN [Interacting]
     Active Substance: WARFARIN SODIUM
     Route: 048
  6. ENALAPRIL MALEATE. [Concomitant]
     Active Substance: ENALAPRIL MALEATE
  7. LANOXIN [Concomitant]
     Active Substance: DIGOXIN
     Dosage: 0.125 MG TABLETS- 1 BLISTER PACK OF 30 TABLETS
     Route: 048
  8. MINITRAN (ITALY) [Concomitant]
     Dosage: 10 MG/24 HOUR TRANSDERMAL PATCHES- 15 PATCHES
     Route: 062

REACTIONS (2)
  - Drug interaction [Unknown]
  - International normalised ratio increased [Recovered/Resolved]

NARRATIVE: CASE EVENT DATE: 20150625
